FAERS Safety Report 14599122 (Version 1)
Quarter: 2018Q1

REPORT INFORMATION
  Report Type: Spontaneous
  Country: US (occurrence: US)
  Receive Date: 20180305
  Receipt Date: 20180305
  Transmission Date: 20180509
  Serious: Yes (Hospitalization, Other)
  Sender: FDA-Public Use
  Company Number: US-BAYER-2018-041773

PATIENT
  Age: 69 Year
  Sex: Male
  Weight: 106 kg

DRUGS (7)
  1. SIMVASTATIN. [Concomitant]
     Active Substance: SIMVASTATIN
     Dosage: 20 MG, UNK
  2. CITALOPRAM [Concomitant]
     Active Substance: CITALOPRAM HYDROBROMIDE
     Dosage: 40 MG, UNK
  3. BAYER LOW DOSE [Suspect]
     Active Substance: ASPIRIN
     Indication: PROPHYLAXIS
     Dosage: 1 DF, UNK
     Route: 048
  4. CLOZAPINE. [Concomitant]
     Active Substance: CLOZAPINE
     Indication: SLEEP DISORDER THERAPY
     Dosage: 1/8TH OF .05MG
  5. FENOFIBRATE. [Concomitant]
     Active Substance: FENOFIBRATE
     Dosage: 150 MG, UNK
  6. NEXIUM [Concomitant]
     Active Substance: ESOMEPRAZOLE MAGNESIUM
     Dosage: UNK
  7. BAYER LOW DOSE [Suspect]
     Active Substance: ASPIRIN
     Indication: PROPHYLAXIS
     Dosage: UNK
     Dates: start: 20180226

REACTIONS (7)
  - Faeces discoloured [Recovered/Resolved]
  - Dehydration [Recovered/Resolved]
  - Weight decreased [Recovered/Resolved]
  - Decreased appetite [Recovered/Resolved]
  - Gait disturbance [Recovered/Resolved]
  - Gastric ulcer haemorrhage [Recovered/Resolved]
  - Insomnia [Recovered/Resolved]

NARRATIVE: CASE EVENT DATE: 201801
